FAERS Safety Report 4676834-5 (Version None)
Quarter: 2005Q2

REPORT INFORMATION
  Report Type: 
  Country: None (occurrence: None)
  Receive Date: 20050527
  Receipt Date: 20050524
  Transmission Date: 20051028
  Serious: Yes (Hospitalization)
  Sender: FDA-Public Use
  Company Number: US-MERCK-0505USA03006

PATIENT
  Age: 67 Year
  Sex: Female
  Weight: 68 kg

DRUGS (17)
  1. VIOXX [Suspect]
     Indication: PAIN IN EXTREMITY
     Route: 048
     Dates: start: 20030501, end: 20030801
  2. VIOXX [Suspect]
     Route: 048
     Dates: start: 20030501, end: 20030801
  3. VIOXX [Suspect]
     Route: 048
     Dates: start: 20030116
  4. VIOXX [Suspect]
     Route: 048
     Dates: start: 20030204
  5. VIOXX [Suspect]
     Route: 065
     Dates: start: 20040820
  6. NEURONTIN [Concomitant]
     Indication: NEURALGIA
     Route: 048
  7. NEURONTIN [Concomitant]
     Indication: CONVULSION
     Route: 048
  8. VASERETIC [Concomitant]
     Indication: HYPERTENSION
     Route: 048
  9. LIPITOR [Concomitant]
     Indication: BLOOD CHOLESTEROL INCREASED
     Route: 048
     Dates: start: 19900101
  10. ALPRAZOLAM [Concomitant]
     Route: 065
  11. VICODIN [Concomitant]
     Route: 065
  12. SOMA [Concomitant]
     Indication: MUSCLE RELAXANT THERAPY
     Route: 048
     Dates: start: 20030101
  13. DARVOCET-N 100 [Concomitant]
     Route: 048
     Dates: start: 20030101
  14. DAYPRO [Concomitant]
     Route: 065
     Dates: start: 20030201
  15. CELEBREX [Concomitant]
     Route: 065
     Dates: start: 20000101
  16. IBUPROFEN [Concomitant]
     Route: 065
     Dates: start: 20000101
  17. VASOTEC [Concomitant]
     Route: 065
     Dates: start: 19910101

REACTIONS (3)
  - ARTHROPATHY [None]
  - CEREBROVASCULAR ACCIDENT [None]
  - EMOTIONAL DISTRESS [None]
